FAERS Safety Report 4381063-9 (Version None)
Quarter: 2004Q2

REPORT INFORMATION
  Report Type: 
  Country: None (occurrence: None)
  Receive Date: 20040601
  Receipt Date: 20040315
  Transmission Date: 20050107
  Serious: No
  Sender: FDA-Public Use
  Company Number: FABR-10503

PATIENT
  Age: 86 Year
  Sex: Female
  Weight: 65.7716 kg

DRUGS (9)
  1. FABRAZYME [Suspect]
     Indication: FABRY'S DISEASE
     Dates: start: 20031105
  2. SYNTHROID [Concomitant]
  3. DEMADEX [Concomitant]
  4. XANAX [Concomitant]
  5. SERZONE [Concomitant]
  6. ATENOLOL [Concomitant]
  7. PROTONIX [Concomitant]
  8. ALPHAGAN [Concomitant]
  9. XALATAN [Concomitant]

REACTIONS (2)
  - FATIGUE [None]
  - VISUAL ACUITY REDUCED [None]
